FAERS Safety Report 8565069 (Version 3)
Quarter: 2012Q4

REPORT INFORMATION
  Report Type: 
  Country: BR (occurrence: BR)
  Receive Date: 20120516
  Receipt Date: 20121108
  Transmission Date: 20130627
  Serious: Yes (Hospitalization, Disabling)
  Sender: FDA-Public Use
  Company Number: BR-ASTRAZENECA-2012SE30090

PATIENT
  Age: 53 Year
  Sex: Male
  Weight: 85 kg

DRUGS (10)
  1. SELOZOK [Suspect]
     Indication: HYPERTENSION
     Route: 048
     Dates: start: 2006, end: 20120910
  2. SELOZOK [Suspect]
     Indication: DRESSLER^S SYNDROME
     Route: 048
     Dates: start: 2006, end: 20120910
  3. CRESTOR [Suspect]
     Indication: DYSLIPIDAEMIA
     Route: 048
     Dates: start: 2006, end: 201108
  4. CRESTOR [Suspect]
     Indication: BLOOD CHOLESTEROL ABNORMAL
     Route: 048
     Dates: start: 2006, end: 201108
  5. CRESTOR [Suspect]
     Indication: DYSLIPIDAEMIA
     Route: 048
     Dates: start: 201205
  6. CRESTOR [Suspect]
     Indication: BLOOD CHOLESTEROL ABNORMAL
     Route: 048
     Dates: start: 201205
  7. VASOPRIL [Concomitant]
     Route: 048
  8. JANUMET [Concomitant]
     Route: 048
  9. ASPIRIN PREVENT [Concomitant]
     Route: 048
  10. ZETIA [Concomitant]
     Route: 048

REACTIONS (5)
  - Foot fracture [Recovered/Resolved with Sequelae]
  - Pain in extremity [Not Recovered/Not Resolved]
  - Blood cholesterol increased [Unknown]
  - Drug ineffective [Unknown]
  - Drug dose omission [Not Recovered/Not Resolved]
